FAERS Safety Report 24684921 (Version 1)
Quarter: 2024Q4

REPORT INFORMATION
  Report Type: Spontaneous
  Country: KR (occurrence: KR)
  Receive Date: 20241202
  Receipt Date: 20241202
  Transmission Date: 20250115
  Serious: Yes (Hospitalization, Other)
  Sender: SANOFI AVENTIS
  Company Number: KR-SANOFI-02314003

PATIENT
  Age: 66 Year
  Sex: Female

DRUGS (1)
  1. TOUJEO [Suspect]
     Active Substance: INSULIN GLARGINE
     Indication: Diabetes mellitus
     Dosage: 44 U, QD
     Route: 065

REACTIONS (3)
  - Ligament rupture [Unknown]
  - Memory impairment [Unknown]
  - Product storage error [Unknown]
